FAERS Safety Report 23384040 (Version 2)
Quarter: 2024Q1

REPORT INFORMATION
  Report Type: Report from Study
  Country: BR (occurrence: BR)
  Receive Date: 20240109
  Receipt Date: 20240118
  Transmission Date: 20240410
  Serious: Yes (Other)
  Sender: FDA-Public Use
  Company Number: BR-JNJFOC-20240113105

PATIENT
  Age: 16 Year
  Sex: Male

DRUGS (1)
  1. INFLIXIMAB [Suspect]
     Active Substance: INFLIXIMAB
     Indication: Crohn^s disease
     Dosage: LAST DRUG APPLICATION: 04-JAN-2024
     Route: 041
     Dates: start: 20231027

REACTIONS (1)
  - Crohn^s disease [Unknown]
